FAERS Safety Report 15572971 (Version 1)
Quarter: 2018Q4

REPORT INFORMATION
  Report Type: Spontaneous
  Country: US (occurrence: US)
  Receive Date: 20181031
  Receipt Date: 20181031
  Transmission Date: 20190205
  Serious: No
  Sender: FDA-Public Use
  Company Number: US-SA-2017SA244213

PATIENT
  Age: 44 Year
  Sex: Female

DRUGS (4)
  1. AUBAGIO [Suspect]
     Active Substance: TERIFLUNOMIDE
     Indication: MULTIPLE SCLEROSIS
     Dosage: 14 MG,QD
     Route: 048
     Dates: start: 20171027
  2. VITAMIN D3 [Concomitant]
     Active Substance: CHOLECALCIFEROL
     Dosage: UNK UNK,UNK
     Route: 065
  3. PEPTO-BISMOL [Concomitant]
     Active Substance: BISMUTH SUBSALICYLATE
     Dosage: UNK UNK,UNK
     Route: 065
  4. IRON [Concomitant]
     Active Substance: IRON
     Dosage: UNK UNK,UNK
     Route: 065

REACTIONS (6)
  - Respiratory tract congestion [Unknown]
  - Alopecia [Unknown]
  - Oropharyngeal pain [Unknown]
  - Pyrexia [Unknown]
  - Fall [Unknown]
  - Nausea [Unknown]

NARRATIVE: CASE EVENT DATE: 20171120
